FAERS Safety Report 10032781 (Version 2)
Quarter: 2014Q2

REPORT INFORMATION
  Report Type: Report from Study
  Country: DE (occurrence: DE)
  Receive Date: 20140324
  Receipt Date: 20140516
  Transmission Date: 20141212
  Serious: Yes (Hospitalization, Other)
  Sender: FDA-Public Use
  Company Number: DE-ABBVIE-14P-062-1213843-00

PATIENT
  Sex: Female
  Weight: 56 kg

DRUGS (1)
  1. HUMIRA [Suspect]
     Indication: RHEUMATOID ARTHRITIS
     Route: 058
     Dates: start: 201201

REACTIONS (9)
  - Renal failure [Unknown]
  - Urosepsis [Recovered/Resolved]
  - Hydronephrosis [Recovered/Resolved]
  - Kidney infection [Recovered/Resolved]
  - Pelvi-ureteric obstruction [Unknown]
  - Hydronephrosis [Unknown]
  - Kidney rupture [Unknown]
  - Diverticulitis [Recovered/Resolved]
  - Hypokalaemia [Unknown]
